FAERS Safety Report 18272110 (Version 1)
Quarter: 2020Q3

REPORT INFORMATION
  Report Type: Spontaneous
  Country: US (occurrence: US)
  Receive Date: 20200916
  Receipt Date: 20200916
  Transmission Date: 20201103
  Serious: Yes (Death)
  Sender: FDA-Public Use
  Company Number: None

PATIENT
  Age: 70 Year
  Sex: Female

DRUGS (2)
  1. PIPERACILLIN/TAZOBACTAM [Suspect]
     Active Substance: PIPERACILLIN SODIUM\TAZOBACTAM SODIUM
     Indication: OSTEOMYELITIS
     Dosage: ?          OTHER FREQUENCY:ONCE;?
     Route: 042
     Dates: start: 20200910, end: 20200910
  2. MORPHINE 2 MG IV PUSH ONCE [Concomitant]
     Dates: start: 20200909, end: 20200909

REACTIONS (7)
  - Pulse abnormal [None]
  - Dyspnoea [None]
  - Feeling abnormal [None]
  - Muscle rigidity [None]
  - Infusion related reaction [None]
  - Foaming at mouth [None]
  - Lethargy [None]

NARRATIVE: CASE EVENT DATE: 20200910
